FAERS Safety Report 5007528-4 (Version None)
Quarter: 2006Q2

REPORT INFORMATION
  Report Type: 
  Country: None (occurrence: None)
  Receive Date: 20060522
  Receipt Date: 20060221
  Transmission Date: 20061013
  Serious: Yes (Hospitalization)
  Sender: FDA-Public Use
  Company Number: GB-SANOFI-SYNTHELABO-F01200600517

PATIENT
  Sex: Male

DRUGS (8)
  1. OXALIPLATIN [Suspect]
     Indication: RECTAL CANCER
     Dosage: DOSE NOT SPECIFIED
     Route: 041
     Dates: start: 20060203, end: 20060203
  2. CAPECITABINE [Suspect]
     Dosage: DOSE NOT SPECIFIED
     Route: 048
     Dates: start: 20051123, end: 20060203
  3. METFORMIN [Concomitant]
  4. LISINOPRIL [Concomitant]
  5. FRUSEMIDE [Concomitant]
  6. ASPIRIN [Concomitant]
  7. SIMVASTATIN [Concomitant]
  8. CYPROMOL [Concomitant]

REACTIONS (6)
  - BUNDLE BRANCH BLOCK RIGHT [None]
  - CORONARY ARTERY STENOSIS [None]
  - ELECTROCARDIOGRAM ST SEGMENT DEPRESSION [None]
  - MYOCARDIAL INFARCTION [None]
  - MYOCARDIAL ISCHAEMIA [None]
  - TROPONIN INCREASED [None]
